FAERS Safety Report 5186265-X (Version None)
Quarter: 2006Q4

REPORT INFORMATION
  Report Type: 
  Country: None (occurrence: None)
  Receive Date: 20061213
  Receipt Date: 20061128
  Transmission Date: 20070319
  Serious: Yes (Other)
  Sender: FDA-Public Use
  Company Number: 2006SP007662

PATIENT
  Age: 66 Year
  Sex: Female
  Weight: 88 kg

DRUGS (2)
  1. DIPROSPAN  (BETAMETHASONE SODIUM PHOSPHATE/DIPROPIONATE)  (BETAMETHASO [Suspect]
     Indication: OSTEOARTHRITIS
     Dosage: IM
     Route: 030
     Dates: start: 20060201, end: 20061022
  2. FELDENE [Concomitant]

REACTIONS (3)
  - CATARACT SUBCAPSULAR [None]
  - HYPERTENSION [None]
  - TREMOR [None]
